FAERS Safety Report 6628227-9 (Version None)
Quarter: 2010Q1

REPORT INFORMATION
  Report Type: 
  Country: None (occurrence: None)
  Receive Date: 20100308
  Receipt Date: 20100301
  Transmission Date: 20100710
  Serious: Yes (Hospitalization, Other)
  Sender: FDA-Public Use
  Company Number: ALL1-2010-01110

PATIENT
  Age: 87 Year
  Sex: Male

DRUGS (2)
  1. FOSRENOL [Suspect]
     Indication: DRUG USE FOR UNKNOWN INDICATION
     Dosage: 1000 MG OTHER (WITH MEALS) ORAL
     Route: 048
  2. FOSRENOL [Suspect]
     Indication: HYPERPHOSPHATAEMIA
     Dosage: 1000 MG OTHER (WITH MEALS) ORAL
     Route: 048

REACTIONS (4)
  - ABDOMINAL DISTENSION [None]
  - GASTROINTESTINAL DISORDER [None]
  - HIP FRACTURE [None]
  - NAUSEA [None]
